FAERS Safety Report 6520182-5 (Version None)
Quarter: 2009Q4

REPORT INFORMATION
  Report Type: 
  Country: None (occurrence: None)
  Receive Date: 20091229
  Receipt Date: 20091223
  Transmission Date: 20100525
  Serious: Yes (Hospitalization)
  Sender: FDA-Public Use
  Company Number: GB-B.I. PHARMACEUTICALS,INC./RIDGEFIELD-2009-UK-01112UK

PATIENT
  Age: 80 Year
  Sex: Male

DRUGS (8)
  1. ALUPENT [Suspect]
     Dosage: 60 MG
     Dates: start: 20080710, end: 20080710
  2. AMOXICILLIN [Concomitant]
     Dosage: 1500 MG
     Route: 048
  3. ASPIRIN [Concomitant]
     Route: 048
  4. BISOPROLOL [Concomitant]
  5. CO-CODAMOL [Concomitant]
  6. GAVISCON [Concomitant]
     Dosage: 10ML (UNKNOWN FREQUENCY)
  7. LACTULOSE [Concomitant]
     Dosage: 40 ML
     Route: 048
  8. SENNA [Concomitant]
     Dosage: 2DF 1/1 DAYS
     Route: 048

REACTIONS (4)
  - ACUTE MYOCARDIAL INFARCTION [None]
  - ATRIAL FIBRILLATION [None]
  - CHEST PAIN [None]
  - HYPERHIDROSIS [None]
